FAERS Safety Report 9326361 (Version 3)
Quarter: 2013Q3

REPORT INFORMATION
  Report Type: Spontaneous
  Country: DK (occurrence: DK)
  Receive Date: 20130604
  Receipt Date: 20130710
  Transmission Date: 20140515
  Serious: Yes (Other)
  Sender: FDA-Public Use
  Company Number: DK-ELI_LILLY_AND_COMPANY-DK201305008288

PATIENT
  Sex: Female

DRUGS (2)
  1. GEMZAR [Suspect]
     Indication: BREAST CANCER
  2. TRASTUZUMAB [Concomitant]
     Indication: BREAST CANCER

REACTIONS (3)
  - Malignant neoplasm progression [Unknown]
  - Pleural effusion [Unknown]
  - Pericarditis [Not Recovered/Not Resolved]
